FAERS Safety Report 21239632 (Version 1)
Quarter: 2022Q3

REPORT INFORMATION
  Report Type: Report from Study
  Country: US (occurrence: US)
  Receive Date: 20220822
  Receipt Date: 20220822
  Transmission Date: 20221027
  Serious: Yes (Death, Other)
  Sender: FDA-Public Use
  Company Number: US-GILEAD-2022-0593731

PATIENT
  Sex: Male

DRUGS (3)
  1. AZTREONAM LYSINE [Suspect]
     Active Substance: AZTREONAM LYSINE
     Indication: Tracheostomy
     Dosage: 1 DOSAGE FORM, TID, 28/28
     Route: 055
  2. EPIDIOLEX [Concomitant]
     Active Substance: CANNABIDIOL
  3. RUFINAMIDE [Concomitant]
     Active Substance: RUFINAMIDE

REACTIONS (2)
  - Death [Fatal]
  - Off label use [Unknown]
